FAERS Safety Report 22064175 (Version 1)
Quarter: 2023Q1

REPORT INFORMATION
  Report Type: Spontaneous
  Country: US (occurrence: US)
  Receive Date: 20230306
  Receipt Date: 20230306
  Transmission Date: 20230417
  Serious: No
  Sender: FDA-Public Use
  Company Number: US-MICRO LABS LIMITED-ML2023-01053

PATIENT
  Age: 87 Year
  Sex: Male
  Weight: 77 kg

DRUGS (1)
  1. DORZOLAMIDE\TIMOLOL [Suspect]
     Active Substance: DORZOLAMIDE\TIMOLOL
     Indication: Glaucoma
     Dosage: ONE DROP IN EACH EYE
     Route: 047
     Dates: start: 20230219

REACTIONS (1)
  - Eye irritation [Unknown]

NARRATIVE: CASE EVENT DATE: 20230219
